FAERS Safety Report 7258290-6 (Version None)
Quarter: 2011Q1

REPORT INFORMATION
  Report Type: 
  Country: None (occurrence: None)
  Receive Date: 20110129
  Receipt Date: 20100720
  Transmission Date: 20110831
  Serious: No
  Sender: FDA-Public Use
  Company Number: US-ABBOTT-10P-163-0660361-00

PATIENT
  Age: 18 Year
  Sex: Male
  Weight: 68.1 kg

DRUGS (4)
  1. HUMIRA [Suspect]
     Dates: end: 20100720
  2. TOPAMAX [Concomitant]
     Indication: MIGRAINE
  3. HUMIRA [Suspect]
     Indication: CROHN'S DISEASE
     Dosage: TO BE DOING 40MG Q2WKS, BUT HELD ON 20 JUL 2010 BY PHYSICIAN.
     Route: 058
     Dates: start: 20100705, end: 20100705
  4. METHOTREXATE [Concomitant]
     Indication: CROHN'S DISEASE
     Route: 048

REACTIONS (2)
  - PARAESTHESIA [None]
  - HYPOAESTHESIA FACIAL [None]
